FAERS Safety Report 7892673-6 (Version None)
Quarter: 2011Q4

REPORT INFORMATION
  Report Type: 
  Country: None (occurrence: None)
  Receive Date: 20111102
  Receipt Date: 20111019
  Transmission Date: 20120403
  Serious: Yes (Other)
  Sender: FDA-Public Use
  Company Number: 1000025051

PATIENT
  Age: 43 Year
  Sex: Male

DRUGS (2)
  1. ESCITALOPRAM [Suspect]
     Indication: DEPRESSION
     Dosage: 10 MG (10 MG,1 IN 1 D),ORAL
     Route: 048
  2. ESCITALOPRAM [Suspect]
     Indication: DEPRESSION
     Dosage: 20 MG (20 MG,1 IN 1 D),ORAL ; 10-15 MG (1 IN 1 D),ORAL
     Route: 048

REACTIONS (5)
  - MIDDLE INSOMNIA [None]
  - SELF-MEDICATION [None]
  - HYPERSEXUALITY [None]
  - WEIGHT DECREASED [None]
  - MANIA [None]
